FAERS Safety Report 18192245 (Version 1)
Quarter: 2020Q3

REPORT INFORMATION
  Report Type: Spontaneous
  Country: US (occurrence: US)
  Receive Date: 20200825
  Receipt Date: 20200825
  Transmission Date: 20201103
  Serious: Yes (Disabling)
  Sender: FDA-Public Use
  Company Number: None

PATIENT
  Age: 54 Year
  Sex: Male
  Weight: 90 kg

DRUGS (1)
  1. RESCUE SLEEP [Suspect]
     Active Substance: HOMEOPATHICS
     Indication: INSOMNIA
     Dosage: ?          QUANTITY:2 SPRAY(S);?
     Route: 048

REACTIONS (1)
  - Erectile dysfunction [None]

NARRATIVE: CASE EVENT DATE: 20200825
